FAERS Safety Report 14247835 (Version 2)
Quarter: 2017Q4

REPORT INFORMATION
  Report Type: Spontaneous
  Country: IT (occurrence: IT)
  Receive Date: 20171204
  Receipt Date: 20171228
  Transmission Date: 20180321
  Serious: Yes (Hospitalization)
  Sender: FDA-Public Use
  Company Number: IT-IBIGEN-2017.03171

PATIENT
  Age: 28 Year
  Sex: Male
  Weight: 47 kg

DRUGS (5)
  1. ORKAMBI [Suspect]
     Active Substance: IVACAFTOR\LUMACAFTOR
     Indication: CYSTIC FIBROSIS
     Dosage: 2 DF (200-125 MG EACH),BID
     Route: 048
     Dates: start: 20170925, end: 20170930
  2. ORKAMBI [Suspect]
     Active Substance: IVACAFTOR\LUMACAFTOR
     Indication: CYSTIC FIBROSIS
     Dosage: 1 DF (200-125MG EACH)BID
     Route: 048
     Dates: start: 20170918, end: 20170925
  3. TEXTAZO [Suspect]
     Active Substance: PIPERACILLIN SODIUM\TAZOBACTAM SODIUM
     Indication: BRONCHOPNEUMOPATHY
     Dosage: 4.5 MG QID
     Route: 030
     Dates: start: 20170915, end: 20171002
  4. FANTOMALT [Concomitant]
  5. NUTRIDRINK [Concomitant]
     Dates: start: 20170915

REACTIONS (3)
  - Drug interaction [Recovered/Resolved]
  - Aspartate aminotransferase increased [Recovered/Resolved]
  - Alanine aminotransferase increased [Recovered/Resolved]

NARRATIVE: CASE EVENT DATE: 20170926
